FAERS Safety Report 10268280 (Version 1)
Quarter: 2014Q2

REPORT INFORMATION
  Report Type: Spontaneous
  Country: DE (occurrence: DE)
  Receive Date: 20140630
  Receipt Date: 20140630
  Transmission Date: 20141212
  Serious: Yes (Hospitalization, Disabling)
  Sender: FDA-Public Use
  Company Number: GXKR2014DE002383

PATIENT
  Sex: 0

DRUGS (2)
  1. DEXAMETHASONE [Suspect]
     Indication: POLYCYSTIC OVARIES
     Dates: start: 200410, end: 200502
  2. BROMOCRIPTINE [Suspect]
     Indication: POLYCYSTIC OVARIES
     Dates: start: 200410, end: 200502

REACTIONS (2)
  - Premature baby [Recovered/Resolved with Sequelae]
  - Congenital oesophageal anomaly [Recovered/Resolved with Sequelae]
